FAERS Safety Report 7503239-1 (Version None)
Quarter: 2011Q2

REPORT INFORMATION
  Report Type: 
  Country: None (occurrence: None)
  Receive Date: 20110525
  Receipt Date: 20100806
  Transmission Date: 20111010
  Serious: No
  Sender: FDA-Public Use
  Company Number: A0874411A

PATIENT
  Age: 47 Year
  Sex: Male

DRUGS (1)
  1. BACTROBAN [Suspect]
     Dates: start: 20100805

REACTIONS (2)
  - DYSGEUSIA [None]
  - AGEUSIA [None]
